FAERS Safety Report 7017079 (Version 6)
Quarter: 2013Q1

REPORT INFORMATION
  Report Type: Spontaneous
  Country: US (occurrence: US)
  Receive Date: 20090611
  Receipt Date: 20130228
  Transmission Date: 20140127
  Serious: Yes (Other)
  Sender: FDA-Public Use
  Company Number: PHEH2009US05574

PATIENT
  Age: 64 None
  Sex: Female

DRUGS (5)
  1. FEMARA [Suspect]
     Indication: AROMATASE INHIBITION THERAPY
     Dosage: 2.5 MG, DAILY
     Route: 048
     Dates: start: 200708
  2. COUMADIN ^DUPONT^ [Concomitant]
     Indication: DEEP VEIN THROMBOSIS
     Dosage: 7.5 TO 10 MG DEPENDING
     Route: 048
     Dates: start: 2005
  3. PAXIL [Concomitant]
     Indication: DEPRESSION
     Dosage: 20 MG, QD
     Route: 048
  4. ENULOSE [Concomitant]
     Indication: CONSTIPATION
     Dosage: 30 ML, TID
     Route: 048
     Dates: start: 2009
  5. LORAZEPAM [Concomitant]
     Indication: ANXIETY
     Dosage: 1 MG, PRN
     Route: 048

REACTIONS (2)
  - Hepatic cirrhosis [Not Recovered/Not Resolved]
  - Amnesia [Unknown]
